FAERS Safety Report 7633378-6 (Version None)
Quarter: 2011Q3

REPORT INFORMATION
  Report Type: 
  Country: None (occurrence: None)
  Receive Date: 20110725
  Receipt Date: 20101116
  Transmission Date: 20111222
  Serious: No
  Sender: FDA-Public Use
  Company Number: US-BRISTOL-MYERS SQUIBB COMPANY-15389257

PATIENT
  Age: 72 Year
  Sex: Female
  Weight: 70 kg

DRUGS (3)
  1. BLOOD PRESSURE MEDICATION [Concomitant]
  2. SPRYCEL [Suspect]
     Dates: start: 20100916
  3. CHOLESTEROL MEDICATION [Concomitant]

REACTIONS (2)
  - DRY MOUTH [None]
  - TRISMUS [None]
